FAERS Safety Report 17787829 (Version 4)
Quarter: 2020Q3

REPORT INFORMATION
  Report Type: Spontaneous
  Country: DE (occurrence: DE)
  Receive Date: 20200514
  Receipt Date: 20200714
  Transmission Date: 20201102
  Serious: Yes (Life-Threatening, Other)
  Sender: FDA-Public Use
  Company Number: DE-MYLANLABS-2020M1046401

PATIENT
  Age: 64 Year
  Sex: Female
  Weight: 74 kg

DRUGS (3)
  1. JODTHYROX [Concomitant]
     Active Substance: LEVOTHYROXINE SODIUM\POTASSIUM IODIDE
     Dosage: 110 MICROGRAM
     Route: 048
  2. ENBREL [Suspect]
     Active Substance: ETANERCEPT
     Indication: PSORIATIC ARTHROPATHY
     Dosage: 50 MILLIGRAM
     Route: 058
     Dates: start: 201605, end: 201911
  3. VALSARTAN. [Suspect]
     Active Substance: VALSARTAN
     Indication: PSORIATIC ARTHROPATHY
     Dosage: 80 MILLIGRAM INTAKE FOR AT LEAST 6 YEARS.
     Route: 048

REACTIONS (3)
  - Adenocarcinoma [Not Recovered/Not Resolved]
  - Metastatic bronchial carcinoma [Not Recovered/Not Resolved]
  - Pneumonia [Unknown]

NARRATIVE: CASE EVENT DATE: 201910
